FAERS Safety Report 17006950 (Version 1)
Quarter: 2019Q4

REPORT INFORMATION
  Report Type: Spontaneous
  Country: US (occurrence: US)
  Receive Date: 20191107
  Receipt Date: 20191107
  Transmission Date: 20200122
  Serious: No
  Sender: FDA-Public Use
  Company Number: US-MTPC-MTDA2019-0076932

PATIENT

DRUGS (2)
  1. RADICAVA [Suspect]
     Active Substance: EDARAVONE
     Dosage: 60 MILLIGRAM, QD, DAILY DOSING FOR 10 DAYS FOLLOWED BY A 14-DAY DRUG-FREE PERIOD
     Route: 042
     Dates: start: 20191014
  2. RADICAVA [Suspect]
     Active Substance: EDARAVONE
     Indication: AMYOTROPHIC LATERAL SCLEROSIS
     Dosage: 60 MILLIGRAM, QD, DAILY DOSING FOR 14 DAYS FOLLOWED BY A 14-DAY DRUG-FREE PERIOD
     Route: 042
     Dates: start: 20191014

REACTIONS (4)
  - Pollakiuria [Unknown]
  - Therapeutic response unexpected [Unknown]
  - Energy increased [Unknown]
  - Headache [Unknown]
